FAERS Safety Report 24946794 (Version 2)
Quarter: 2025Q1

REPORT INFORMATION
  Report Type: Spontaneous
  Country: US (occurrence: US)
  Receive Date: 20250210
  Receipt Date: 20250211
  Transmission Date: 20250409
  Serious: No
  Sender: JOHNSON AND JOHNSON
  Company Number: US-JNJFOC-20250130490

PATIENT
  Sex: Male

DRUGS (2)
  1. TECVAYLI [Suspect]
     Active Substance: TECLISTAMAB-CQYV
     Indication: Product used for unknown indication
     Dosage: 153/1.7 ML
     Route: 058
     Dates: start: 20240523
  2. TECVAYLI [Suspect]
     Active Substance: TECLISTAMAB-CQYV
     Dosage: 153/1.7 ML
     Route: 058

REACTIONS (2)
  - Product dose omission issue [Unknown]
  - Off label use [Unknown]
